FAERS Safety Report 4772189-6 (Version None)
Quarter: 2005Q3

REPORT INFORMATION
  Report Type: 
  Country: None (occurrence: None)
  Receive Date: 20050919
  Receipt Date: 20041026
  Transmission Date: 20060218
  Serious: No
  Sender: FDA-Public Use
  Company Number: US-BRISTOL-MYERS SQUIBB COMPANY-12748299

PATIENT
  Sex: Female

DRUGS (4)
  1. DEFINITY [Suspect]
     Indication: STRESS ECHOCARDIOGRAM
     Dosage: ROUTE: INJECTION. 10 CC-1.5CC/8CC SALINE. MECHANICAL INDEX SETTING 0.3
     Route: 051
     Dates: start: 20040922, end: 20040922
  2. SALINE [Concomitant]
     Indication: STRESS ECHOCARDIOGRAM
     Dosage: ROUTE: INJECTION
     Dates: start: 20040922, end: 20040922
  3. SALINE [Concomitant]
     Indication: RENAL DISORDER
     Dosage: ROUTE: INJECTION
     Dates: start: 20040922, end: 20040922
  4. SALINE [Concomitant]
     Indication: PANCREATIC DISORDER
     Dosage: ROUTE: INJECTION
     Dates: start: 20040922, end: 20040922

REACTIONS (1)
  - BACK PAIN [None]
